FAERS Safety Report 25907400 (Version 1)
Quarter: 2025Q4

REPORT INFORMATION
  Report Type: Spontaneous
  Country: GB (occurrence: GB)
  Receive Date: 20251010
  Receipt Date: 20251010
  Transmission Date: 20260118
  Serious: Yes (Other)
  Sender: B. BRAUN MEDICAL INC.
  Company Number: None

PATIENT
  Sex: Female
  Weight: 54 kg

DRUGS (2)
  1. METRONIDAZOLE [Suspect]
     Active Substance: METRONIDAZOLE
     Dosage: 400MG X 3 DAILY
     Dates: start: 20250629, end: 20250703
  2. NYSTATIN [Suspect]
     Active Substance: NYSTATIN
     Indication: Tooth abscess
     Dates: start: 20250629, end: 20250703

REACTIONS (4)
  - Fatigue [Not Recovered/Not Resolved]
  - Hypersomnia [Unknown]
  - Lethargy [Unknown]
  - Dizziness [Unknown]

NARRATIVE: CASE EVENT DATE: 20250704
